FAERS Safety Report 25867319 (Version 2)
Quarter: 2025Q4

REPORT INFORMATION
  Report Type: Spontaneous
  Country: US (occurrence: US)
  Receive Date: 20251001
  Receipt Date: 20251001
  Transmission Date: 20260118
  Serious: No
  Sender: SANDOZ
  Company Number: US-SANDOZ-SDZ2025US065044

PATIENT
  Sex: Female

DRUGS (1)
  1. ESTRADIOL [Suspect]
     Active Substance: ESTRADIOL
     Indication: Product used for unknown indication
     Dosage: 0.05 MG / 1 10 (0.05MG/24H 8TTS)
     Route: 065

REACTIONS (3)
  - Poor quality product administered [Unknown]
  - Circumstance or information capable of leading to device use error [Unknown]
  - Device adhesion issue [Unknown]
